FAERS Safety Report 13047250 (Version 1)
Quarter: 2016Q4

REPORT INFORMATION
  Report Type: Spontaneous
  Country: SE (occurrence: SE)
  Receive Date: 20161220
  Receipt Date: 20161220
  Transmission Date: 20170207
  Serious: Yes (Other)
  Sender: FDA-Public Use
  Company Number: SE-TEVA-719408ISR

PATIENT
  Sex: Male

DRUGS (1)
  1. LEVETIRACETAM ACTAVIS [Suspect]
     Active Substance: LEVETIRACETAM

REACTIONS (1)
  - Epilepsy [Unknown]
